FAERS Safety Report 25526970 (Version 2)
Quarter: 2025Q3

REPORT INFORMATION
  Report Type: Spontaneous
  Country: US (occurrence: US)
  Receive Date: 20250707
  Receipt Date: 20250707
  Transmission Date: 20251020
  Serious: Yes (Other)
  Sender: AMGEN
  Company Number: US-AMGEN-USASP2025129071

PATIENT
  Sex: Female

DRUGS (4)
  1. PROLIA [Suspect]
     Active Substance: DENOSUMAB
     Indication: Product used for unknown indication
     Route: 065
  2. FOSAMAX [Concomitant]
     Active Substance: ALENDRONATE SODIUM
  3. BONIVA [Concomitant]
     Active Substance: IBANDRONATE SODIUM
  4. EVENITY [Concomitant]
     Active Substance: ROMOSOZUMAB-AQQG
     Dates: start: 202410

REACTIONS (3)
  - Spinal fracture [Unknown]
  - Bone density decreased [Unknown]
  - Drug ineffective [Unknown]
